FAERS Safety Report 5635872-6 (Version None)
Quarter: 2008Q1

REPORT INFORMATION
  Report Type: 
  Country: None (occurrence: None)
  Receive Date: 20080221
  Receipt Date: 20080212
  Transmission Date: 20080703
  Serious: Yes (Hospitalization)
  Sender: FDA-Public Use
  Company Number: 2008SP003056

PATIENT
  Age: 74 Year
  Sex: Female

DRUGS (17)
  1. TEMODAL [Suspect]
     Indication: GLIOBLASTOMA
     Dosage: PO
     Route: 048
     Dates: start: 20070201, end: 20071001
  2. ROCEPHIN [Suspect]
     Indication: SEPSIS
     Dosage: 1 GM;QD;IV
     Route: 042
     Dates: start: 20071025, end: 20071109
  3. AMIKIN [Suspect]
     Indication: SEPSIS
     Dosage: IV
     Route: 042
     Dates: start: 20071029, end: 20071031
  4. CIPROFLOXACIN [Suspect]
     Indication: URINARY TRACT INFECTION
     Dosage: 500 MG;BID;PO
     Route: 048
     Dates: start: 20071025, end: 20071029
  5. BACTRIM FORTE (BACTRIM/00086101/) [Suspect]
     Indication: SEPSIS
     Dosage: PO
     Route: 048
     Dates: start: 20071031, end: 20071107
  6. FLUCONAZOLE [Suspect]
     Indication: FUNGAL INFECTION
     Dosage: 100 MG;QD;PO
     Route: 048
     Dates: start: 20071025, end: 20071107
  7. FLAGYL [Suspect]
     Indication: PROPHYLAXIS
     Dosage: 500 MG;BID;PO
     Route: 048
     Dates: start: 20071026, end: 20071031
  8. BRISTOPEN [Concomitant]
  9. MEDROL [Concomitant]
  10. NEURONTIN [Concomitant]
  11. INSULIN [Concomitant]
  12. LEVEMIR [Concomitant]
  13. MOPRAL [Concomitant]
  14. INIPOMP [Concomitant]
  15. DOLIPRANE [Concomitant]
  16. DIFFU K [Concomitant]
  17. LOVENOX [Concomitant]

REACTIONS (19)
  - AMYOTROPHY [None]
  - APHASIA [None]
  - ARTHROPATHY [None]
  - ASTHENIA [None]
  - BLOOD ALKALINE PHOSPHATASE NORMAL [None]
  - CHOLESTASIS [None]
  - DEHYDRATION [None]
  - DISORIENTATION [None]
  - ERYSIPELAS [None]
  - ESCHERICHIA SEPSIS [None]
  - FUNGAL INFECTION [None]
  - GAMMA-GLUTAMYLTRANSFERASE INCREASED [None]
  - GENERAL PHYSICAL HEALTH DETERIORATION [None]
  - GLYCOSYLATED HAEMOGLOBIN INCREASED [None]
  - HYPERGLYCAEMIA [None]
  - PANCREATIC CYST [None]
  - PIGMENTATION DISORDER [None]
  - PLEURAL EFFUSION [None]
  - URINARY TRACT INFECTION [None]
